FAERS Safety Report 9983451 (Version 4)
Quarter: 2014Q2

REPORT INFORMATION
  Report Type: Spontaneous
  Country: US (occurrence: US)
  Receive Date: 20140307
  Receipt Date: 20140512
  Transmission Date: 20141212
  Serious: Yes (Hospitalization)
  Sender: FDA-Public Use
  Company Number: US-SA-2014SA028245

PATIENT
  Age: 78 Year
  Sex: Female

DRUGS (13)
  1. LANTUS SOLOSTAR [Suspect]
     Indication: TYPE 1 DIABETES MELLITUS
     Dosage: DOSE:45 UNIT(S)
     Route: 051
     Dates: start: 2013
  2. LANTUS SOLOSTAR [Suspect]
     Indication: TYPE 1 DIABETES MELLITUS
     Route: 065
  3. SOLOSTAR [Suspect]
     Indication: DEVICE THERAPY
     Dates: start: 2013
  4. SOLOSTAR [Suspect]
     Indication: DEVICE THERAPY
  5. GLUCOPHAGE [Suspect]
     Indication: PRODUCT USED FOR UNKNOWN INDICATION
     Route: 065
  6. HYDROCHLOROTHIAZIDE [Concomitant]
     Dosage: FREQUENCY: AM
  7. SIMVASTATIN [Concomitant]
     Dosage: FREQUENCY: PM?STRENGTH: 80 MG
  8. METOPROLOL [Concomitant]
     Dosage: FREQUENCY: AM?STRENGTH: 50 MG
  9. LOSARTAN [Concomitant]
     Dosage: FREQUENCY: AM?STRENGTH: 25 MG
  10. HUMALOG [Concomitant]
     Dosage: DOSE: 15 U- 3 OR 4 DAY
  11. LATANOPROST [Concomitant]
  12. GABAPENTIN [Concomitant]
     Dosage: FREQUENCY: AM/PM?STRENGTH: 100 MG
  13. ISOSORBIDE [Concomitant]
     Dosage: STRENGTH: 30 MG?FREQUENCY: AM

REACTIONS (2)
  - Adverse event [Recovered/Resolved]
  - Blood glucose increased [Recovered/Resolved]
